FAERS Safety Report 24586506 (Version 3)
Quarter: 2024Q4

REPORT INFORMATION
  Report Type: Spontaneous
  Country: US (occurrence: US)
  Receive Date: 20241106
  Receipt Date: 20241210
  Transmission Date: 20250114
  Serious: No
  Sender: BRISTOL-MYERS SQUIBB COMPANY
  Company Number: US-BRISTOL-MYERS SQUIBB COMPANY-2024-172434

PATIENT
  Age: 83 Year
  Sex: Male

DRUGS (2)
  1. LENALIDOMIDE [Suspect]
     Active Substance: LENALIDOMIDE
     Indication: Non-Hodgkin^s lymphoma
     Route: 048
  2. LENALIDOMIDE [Suspect]
     Active Substance: LENALIDOMIDE
     Route: 048

REACTIONS (6)
  - Product use issue [Unknown]
  - Fatigue [Recovering/Resolving]
  - Asthenia [Recovering/Resolving]
  - Renal function test abnormal [Recovering/Resolving]
  - Urinary tract infection [Not Recovered/Not Resolved]
  - Inappropriate schedule of product administration [Unknown]
